FAERS Safety Report 4816412-8 (Version None)
Quarter: 2005Q4

REPORT INFORMATION
  Report Type: 
  Country: None (occurrence: None)
  Receive Date: 20051028
  Receipt Date: 20051014
  Transmission Date: 20060501
  Serious: Yes (Hospitalization)
  Sender: FDA-Public Use
  Company Number: S05-AUT-03578-01

PATIENT
  Age: 30 Year
  Sex: Male
  Weight: 87 kg

DRUGS (5)
  1. ESCITALOPRAM OXALATE [Suspect]
     Indication: PANIC DISORDER
     Dosage: 10 MG BID PO
     Route: 048
     Dates: start: 20050813, end: 20050814
  2. PASSELYT DROPS [Suspect]
     Indication: PANIC DISORDER
     Dosage: 30 DROPS PRN
     Dates: start: 20050808
  3. ACETYLSALICYLIC ACID SRT [Suspect]
     Dosage: 100 MG QD PO
     Route: 048
  4. LISINOPRIL [Suspect]
     Indication: HYPERTONIA
     Dosage: 5 MG  QD PO
     Route: 048
  5. PRAVACOL (PRAVASTATIN SODUM) [Concomitant]

REACTIONS (5)
  - CIRCULATORY COLLAPSE [None]
  - GENERALISED NON-CONVULSIVE EPILEPSY [None]
  - LOSS OF CONSCIOUSNESS [None]
  - MALAISE [None]
  - SHOCK [None]
